FAERS Safety Report 23548141 (Version 3)
Quarter: 2024Q1

REPORT INFORMATION
  Report Type: Report from Study
  Country: GB (occurrence: GB)
  Receive Date: 20240221
  Receipt Date: 20240306
  Transmission Date: 20240410
  Serious: Yes (Other)
  Sender: FDA-Public Use
  Company Number: GB-002147023-NVSC2024GB018731

PATIENT
  Age: 52 Year
  Sex: Male

DRUGS (2)
  1. KESIMPTA [Suspect]
     Active Substance: OFATUMUMAB
     Indication: Multiple sclerosis
     Dosage: UNK
     Route: 065
     Dates: start: 20240119
  2. KESIMPTA [Suspect]
     Active Substance: OFATUMUMAB
     Dosage: 20 MG, QMO
     Route: 065

REACTIONS (6)
  - Abscess [Unknown]
  - Brain fog [Unknown]
  - Influenza like illness [Unknown]
  - Balance disorder [Unknown]
  - Mobility decreased [Unknown]
  - Fatigue [Unknown]
